FAERS Safety Report 12256256 (Version 3)
Quarter: 2016Q2

REPORT INFORMATION
  Report Type: Spontaneous
  Country: US (occurrence: US)
  Receive Date: 20160412
  Receipt Date: 20160505
  Transmission Date: 20160815
  Serious: Yes (Hospitalization)
  Sender: FDA-Public Use
  Company Number: US-ALKERMES INC.-ALK-2016-000909

PATIENT
  Age: 22 Year
  Sex: Male
  Weight: 120.18 kg

DRUGS (1)
  1. VIVITROL [Suspect]
     Active Substance: NALTREXONE
     Indication: DRUG DEPENDENCE
     Dosage: 380 MG; QMO
     Route: 030

REACTIONS (7)
  - Acute kidney injury [Recovered/Resolved]
  - Respiration abnormal [Recovered/Resolved]
  - Moaning [Recovered/Resolved]
  - Drug dependence [Recovered/Resolved]
  - Rhabdomyolysis [Unknown]
  - Overdose [Recovered/Resolved]
  - Drug effect decreased [Unknown]

NARRATIVE: CASE EVENT DATE: 201604
